FAERS Safety Report 9970645 (Version 1)
Quarter: 2014Q1

REPORT INFORMATION
  Report Type: Report from Study
  Country: US (occurrence: US)
  Receive Date: 20140306
  Receipt Date: 20140306
  Transmission Date: 20141002
  Serious: No
  Sender: FDA-Public Use
  Company Number: US-ABBVIE-13P-163-1147757-00

PATIENT
  Age: 62 Year
  Sex: Female

DRUGS (7)
  1. HUMIRA [Suspect]
     Indication: PSORIASIS
     Dosage: DAY 1 (RX FOR DAY 1)
     Dates: start: 20130828, end: 20130828
  2. HUMIRA [Suspect]
     Dosage: DAY 9 (RX FOR DAY 8)
     Dates: start: 20130905
  3. VESICARE [Concomitant]
     Indication: URINARY INCONTINENCE
  4. CYMBALTA [Concomitant]
     Indication: DEPRESSION
     Dosage: AT BEDTIME
  5. B12 [Concomitant]
     Indication: VITAMIN B12 DECREASED
  6. CLOBEX [Concomitant]
     Indication: PSORIASIS
  7. COCONUT OIL [Concomitant]
     Indication: PSORIASIS

REACTIONS (6)
  - Incorrect dose administered [Not Recovered/Not Resolved]
  - Psoriasis [Not Recovered/Not Resolved]
  - Injection site pain [Recovered/Resolved]
  - Injection site mass [Not Recovered/Not Resolved]
  - Injection site haemorrhage [Recovered/Resolved]
  - Injection site bruising [Not Recovered/Not Resolved]
